FAERS Safety Report 25799413 (Version 1)
Quarter: 2025Q3

REPORT INFORMATION
  Report Type: Spontaneous
  Country: US (occurrence: US)
  Receive Date: 20250913
  Receipt Date: 20250913
  Transmission Date: 20251020
  Serious: No
  Sender: SANOFI AVENTIS
  Company Number: US-SA-2025SA273446

PATIENT
  Sex: Female
  Weight: 81.82 kg

DRUGS (4)
  1. DUPIXENT [Suspect]
     Active Substance: DUPILUMAB
     Indication: Dermatitis atopic
     Dosage: 300 MG, QOW
     Route: 058
  2. TELMISARTAN [Concomitant]
     Active Substance: TELMISARTAN
  3. OZEMPIC [Concomitant]
     Active Substance: SEMAGLUTIDE
  4. ZORYVE [Concomitant]
     Active Substance: ROFLUMILAST

REACTIONS (3)
  - Photophobia [Unknown]
  - Eosinophil count increased [Unknown]
  - Dry eye [Unknown]
